FAERS Safety Report 13718972 (Version 2)
Quarter: 2017Q3

REPORT INFORMATION
  Report Type: Spontaneous
  Country: US (occurrence: US)
  Receive Date: 20170705
  Receipt Date: 20170922
  Transmission Date: 20171127
  Serious: No
  Sender: FDA-Public Use
  Company Number: US-JNJFOC-20170627022

PATIENT
  Sex: Male
  Weight: 84.82 kg

DRUGS (2)
  1. FENTANYL. [Suspect]
     Active Substance: FENTANYL
     Indication: BACK DISORDER
     Route: 062
     Dates: start: 2007
  2. FENTANYL. [Suspect]
     Active Substance: FENTANYL
     Indication: BACK DISORDER
     Dosage: FOR THREE MONTHS
     Route: 062
     Dates: start: 2003

REACTIONS (1)
  - Drug tolerance [Recovered/Resolved]

NARRATIVE: CASE EVENT DATE: 2003
